FAERS Safety Report 14276070 (Version 2)
Quarter: 2018Q1

REPORT INFORMATION
  Report Type: Spontaneous
  Country: US (occurrence: US)
  Receive Date: 20171212
  Receipt Date: 20180201
  Transmission Date: 20180508
  Serious: Yes (Other)
  Sender: FDA-Public Use
  Company Number: US-PFIZER INC-2017523251

PATIENT
  Age: 60 Year
  Sex: Female

DRUGS (2)
  1. LIDOCAINE HCL [Suspect]
     Active Substance: LIDOCAINE HYDROCHLORIDE
     Indication: ARTHRALGIA
     Dosage: 1 ML, UNK
     Route: 014
     Dates: start: 20170914
  2. BETAMETHASONE ACETATE W/BETAMETHASONE SODIUM [Suspect]
     Active Substance: BETAMETHASONE ACETATE\BETAMETHASONE SODIUM PHOSPHATE
     Indication: ARTHRALGIA
     Dosage: 0.5 ML, UNK (0.5 ML MIXED WITH 1 ML OF LIDOCAINE)
     Route: 014
     Dates: start: 20170914

REACTIONS (3)
  - Swelling [Unknown]
  - Product use issue [Unknown]
  - Abscess limb [Unknown]

NARRATIVE: CASE EVENT DATE: 20170914
